FAERS Safety Report 20709744 (Version 4)
Quarter: 2022Q2

REPORT INFORMATION
  Report Type: Report from Study
  Country: US (occurrence: US)
  Receive Date: 20220414
  Receipt Date: 20220602
  Transmission Date: 20220721
  Serious: Yes (Hospitalization)
  Sender: FDA-Public Use
  Company Number: US-ViiV Healthcare Limited-US2022GSK059841

PATIENT
  Age: 66 Year
  Sex: Male

DRUGS (4)
  1. RILPIVIRINE [Suspect]
     Active Substance: RILPIVIRINE
     Indication: HIV infection
     Dosage: 600/900MG
     Route: 030
     Dates: start: 20220113, end: 20220118
  2. RILPIVIRINE [Suspect]
     Active Substance: RILPIVIRINE
     Dosage: 600/900MG
     Route: 030
     Dates: start: 20220324
  3. CABOTEGRAVIR [Suspect]
     Active Substance: CABOTEGRAVIR
     Indication: HIV infection
     Dosage: 600/900MG
     Route: 030
     Dates: start: 20220113, end: 20220118
  4. CABOTEGRAVIR [Suspect]
     Active Substance: CABOTEGRAVIR
     Dosage: 600/900MG
     Route: 030
     Dates: start: 20220324

REACTIONS (3)
  - Blood pressure increased [Recovered/Resolved]
  - Weight decreased [Recovering/Resolving]
  - Hernia [Recovering/Resolving]

NARRATIVE: CASE EVENT DATE: 20220113
